FAERS Safety Report 9838982 (Version 3)
Quarter: 2014Q3

REPORT INFORMATION
  Report Type: Spontaneous
  Country: US (occurrence: US)
  Receive Date: 20140123
  Receipt Date: 20140830
  Transmission Date: 20150326
  Serious: Yes (Hospitalization, Other)
  Sender: FDA-Public Use
  Company Number: US-009507513-1401USA010072

PATIENT
  Sex: Female

DRUGS (2)
  1. NUVARING [Suspect]
     Active Substance: ETHINYL ESTRADIOL\ETONOGESTREL
     Indication: MENSTRUAL CYCLE MANAGEMENT
  2. NUVARING [Suspect]
     Active Substance: ETHINYL ESTRADIOL\ETONOGESTREL
     Indication: CONTRACEPTION
     Dosage: UNK
     Route: 067
     Dates: end: 2009

REACTIONS (14)
  - Back pain [Unknown]
  - Breast discharge [Unknown]
  - Rhinitis allergic [Unknown]
  - Pulmonary embolism [Unknown]
  - Osteoarthritis [Unknown]
  - Foot fracture [Unknown]
  - Deep vein thrombosis [Unknown]
  - Hyperlipidaemia [Unknown]
  - Inappropriate schedule of drug administration [Unknown]
  - Pleurisy [Unknown]
  - Deep vein thrombosis [Unknown]
  - Anxiety [Unknown]
  - Off label use [Unknown]
  - Endometrial ablation [Unknown]

NARRATIVE: CASE EVENT DATE: 200904
